FAERS Safety Report 7647326-6 (Version None)
Quarter: 2011Q3

REPORT INFORMATION
  Report Type: 
  Country: None (occurrence: None)
  Receive Date: 20110801
  Receipt Date: 20110722
  Transmission Date: 20111222
  Serious: Yes (Other)
  Sender: FDA-Public Use
  Company Number: FR-ROCHE-787687

PATIENT
  Sex: Female
  Weight: 94 kg

DRUGS (5)
  1. ACTEMRA [Suspect]
     Route: 042
     Dates: start: 20110712
  2. TRAMADOL HCL [Concomitant]
     Indication: PAIN
     Route: 048
  3. CELEBREX [Concomitant]
     Indication: PAIN
     Route: 048
     Dates: start: 20100401
  4. ACTEMRA [Suspect]
     Indication: SPONDYLOARTHROPATHY
     Dosage: FREQUENCY:CYCLE, LAST INFUSION WAS POSTPONED
     Route: 042
     Dates: start: 20110418
  5. NEXIUM [Concomitant]
     Route: 048

REACTIONS (1)
  - PRURIGO [None]
